FAERS Safety Report 6374362-2 (Version None)
Quarter: 2009Q3

REPORT INFORMATION
  Report Type: 
  Country: None (occurrence: None)
  Receive Date: 20090924
  Receipt Date: 20081104
  Transmission Date: 20100115
  Serious: No
  Sender: FDA-Public Use
  Company Number: A0755182A

PATIENT

DRUGS (2)
  1. EPZICOM [Suspect]
     Indication: DRUG USE FOR UNKNOWN INDICATION
     Route: 048
     Dates: start: 20080701
  2. PREZISTA [Suspect]
     Indication: DRUG USE FOR UNKNOWN INDICATION
     Route: 065
     Dates: start: 20080701

REACTIONS (3)
  - COUGH [None]
  - RESPIRATION ABNORMAL [None]
  - WHEEZING [None]
